FAERS Safety Report 6946717-6 (Version None)
Quarter: 2010Q3

REPORT INFORMATION
  Report Type: 
  Country: None (occurrence: None)
  Receive Date: 20100825
  Receipt Date: 20100812
  Transmission Date: 20110219
  Serious: Yes (Life-Threatening)
  Sender: FDA-Public Use
  Company Number: MC201000232

PATIENT

DRUGS (1)
  1. ANGIOMAX [Suspect]
     Dosage: , INTRAVENOUS
     Route: 042

REACTIONS (2)
  - CEREBROVASCULAR ACCIDENT [None]
  - DRUG INEFFECTIVE [None]
